FAERS Safety Report 4885776-1 (Version None)
Quarter: 2006Q1

REPORT INFORMATION
  Report Type: 
  Country: None (occurrence: None)
  Receive Date: 20060120
  Receipt Date: 20060116
  Transmission Date: 20060701
  Serious: Yes (Hospitalization)
  Sender: FDA-Public Use
  Company Number: JP-BOEHRINGER INGELHEIM PHARMACEUTICALS, INC.-2006-BP-00524NB

PATIENT
  Age: 68 Year
  Sex: Male

DRUGS (7)
  1. MICARDIS [Suspect]
     Route: 048
     Dates: start: 20050916, end: 20051112
  2. CATAPRES [Concomitant]
     Route: 048
  3. BASEN [Concomitant]
     Route: 048
  4. CALTAN (PRECIPITATED CALCIUM CARBONATE) [Concomitant]
     Route: 048
  5. ADONA [Concomitant]
     Route: 048
  6. TRANSAMIN [Concomitant]
     Route: 048
  7. SELBEX [Concomitant]
     Route: 048

REACTIONS (2)
  - HEPATIC FUNCTION ABNORMAL [None]
  - JAUNDICE [None]
